FAERS Safety Report 17429425 (Version 1)
Quarter: 2020Q1

REPORT INFORMATION
  Report Type: Spontaneous
  Country: US (occurrence: US)
  Receive Date: 20200203
  Receipt Date: 20200203
  Transmission Date: 20200409
  Serious: No
  Sender: FDA-Public Use
  Company Number: None

PATIENT
  Age: 31 Year
  Sex: Female

DRUGS (1)
  1. MAKENA [Suspect]
     Active Substance: HYDROXYPROGESTERONE CAPROATE
     Route: 058
     Dates: start: 20191226

REACTIONS (4)
  - Maternal exposure during pregnancy [None]
  - Foetal exposure during pregnancy [None]
  - Uterine pain [None]
  - Uterine contractions during pregnancy [None]

NARRATIVE: CASE EVENT DATE: 20200118
